FAERS Safety Report 8186760-5 (Version None)
Quarter: 2012Q1

REPORT INFORMATION
  Report Type: 
  Country: None (occurrence: None)
  Receive Date: 20120306
  Receipt Date: 20120306
  Transmission Date: 20120608
  Serious: Yes (Other)
  Sender: FDA-Public Use
  Company Number: None

PATIENT
  Age: 47 Year
  Sex: Male
  Weight: 79.378 kg

DRUGS (1)
  1. LEXAPRO [Suspect]
     Indication: DEPRESSION
     Dosage: 10 MG
     Route: 048
     Dates: start: 20110216, end: 20110724

REACTIONS (6)
  - MANIA [None]
  - HOSTILITY [None]
  - UNEMPLOYMENT [None]
  - DISEASE RECURRENCE [None]
  - ECONOMIC PROBLEM [None]
  - DEPRESSION [None]
